FAERS Safety Report 8067956-X (Version None)
Quarter: 2012Q1

REPORT INFORMATION
  Report Type: 
  Country: None (occurrence: None)
  Receive Date: 20120124
  Receipt Date: 20110906
  Transmission Date: 20120608
  Serious: No
  Sender: FDA-Public Use
  Company Number: US-AMGEN-USASP2011045459

PATIENT
  Age: 79 Year
  Sex: Female

DRUGS (4)
  1. NAPROXEN (ALEVE) [Concomitant]
     Dosage: UNK
  2. ASPIRIN [Concomitant]
     Dosage: UNK
  3. PROLIA [Suspect]
     Indication: OSTEOPOROSIS POSTMENOPAUSAL
     Dosage: UNK UNK, Q6MO
     Dates: start: 20110813
  4. VITAMIN D [Concomitant]
     Dosage: UNK

REACTIONS (2)
  - INSOMNIA [None]
  - BACK PAIN [None]
